FAERS Safety Report 5066659-3 (Version None)
Quarter: 2006Q3

REPORT INFORMATION
  Report Type: 
  Country: None (occurrence: None)
  Receive Date: 20060710
  Receipt Date: 20051208
  Transmission Date: 20061208
  Serious: Yes (Hospitalization)
  Sender: FDA-Public Use
  Company Number: PHEH2005US13381

PATIENT
  Age: 15 Year
  Sex: Male

DRUGS (2)
  1. GLEEVEC [Suspect]
     Indication: BLAST CRISIS IN MYELOGENOUS LEUKAEMIA
     Route: 065
  2. METHOTREXATE [Concomitant]

REACTIONS (1)
  - COLITIS EROSIVE [None]
